FAERS Safety Report 10089062 (Version 2)
Quarter: 2014Q2

REPORT INFORMATION
  Report Type: Spontaneous
  Country: US (occurrence: US)
  Receive Date: 20140421
  Receipt Date: 20140421
  Transmission Date: 20141212
  Serious: No
  Sender: FDA-Public Use
  Company Number: US-DRREDDYS-USA/USA/14/0038453

PATIENT
  Age: 15 Year
  Sex: Male

DRUGS (3)
  1. ZENATANE [Suspect]
     Indication: ACNE
     Route: 065
     Dates: start: 20130911, end: 20140211
  2. ZENATANE [Suspect]
     Route: 065
     Dates: start: 20140206
  3. ISOTRETINOIN [Suspect]
     Indication: ACNE
     Route: 065

REACTIONS (1)
  - Rash [Recovered/Resolved]
